FAERS Safety Report 22086426 (Version 6)
Quarter: 2024Q1

REPORT INFORMATION
  Report Type: Report from Study
  Country: US (occurrence: US)
  Receive Date: 20230312
  Receipt Date: 20240105
  Transmission Date: 20240410
  Serious: No
  Sender: FDA-Public Use
  Company Number: US-002147023-NVSC2023US053271

PATIENT
  Age: 54 Year
  Sex: Female

DRUGS (1)
  1. KESIMPTA [Suspect]
     Active Substance: OFATUMUMAB
     Indication: Product used for unknown indication
     Dosage: UNK
     Route: 058
     Dates: start: 20230206

REACTIONS (8)
  - Visual impairment [Recovered/Resolved]
  - Nail injury [Recovered/Resolved]
  - Influenza like illness [Recovered/Resolved]
  - Urinary tract infection [Unknown]
  - Ear infection [Unknown]
  - Irritable bowel syndrome [Unknown]
  - Sinusitis [Unknown]
  - Injection site pain [Unknown]

NARRATIVE: CASE EVENT DATE: 20230306
